FAERS Safety Report 7770640-0 (Version None)
Quarter: 2011Q3

REPORT INFORMATION
  Report Type: 
  Country: None (occurrence: None)
  Receive Date: 20110922
  Receipt Date: 20110921
  Transmission Date: 20111222
  Serious: Yes (Death, Other)
  Sender: FDA-Public Use
  Company Number: PHHY2011BR83654

PATIENT
  Sex: Female
  Weight: 69 kg

DRUGS (1)
  1. FORMOTEROL FUMARATE [Suspect]
     Indication: LUNG DISORDER
     Dosage: 1 DF, BID, ONE INHALATION IN MORNING, ONE INHALATION IN EVENING

REACTIONS (4)
  - LUNG DISORDER [None]
  - PLEURAL EFFUSION [None]
  - CARDIAC ARREST [None]
  - CARDIAC DISORDER [None]
